FAERS Safety Report 25487181 (Version 4)
Quarter: 2025Q4

REPORT INFORMATION
  Report Type: Report from Study
  Country: JP (occurrence: JP)
  Receive Date: 20250627
  Receipt Date: 20251022
  Transmission Date: 20260118
  Serious: Yes (Other)
  Sender: ROCHE
  Company Number: JP-CHUGAI-2025008239

PATIENT
  Age: 76 Year
  Sex: Male

DRUGS (10)
  1. PIASKY [Suspect]
     Active Substance: CROVALIMAB-AKKZ
     Indication: Paroxysmal nocturnal haemoglobinuria
     Dosage: UNK
     Route: 042
     Dates: start: 20250218, end: 20250218
  2. PIASKY [Suspect]
     Active Substance: CROVALIMAB-AKKZ
     Dosage: UNK
     Route: 058
     Dates: start: 20250415, end: 20250415
  3. PIASKY [Suspect]
     Active Substance: CROVALIMAB-AKKZ
     Dosage: UNK
     Route: 058
     Dates: start: 20250219, end: 20250219
  4. PIASKY [Suspect]
     Active Substance: CROVALIMAB-AKKZ
     Dosage: UNK
     Route: 058
     Dates: start: 20250610
  5. PIASKY [Suspect]
     Active Substance: CROVALIMAB-AKKZ
     Dosage: UNK
     Route: 058
     Dates: start: 20250225, end: 20250225
  6. PIASKY [Suspect]
     Active Substance: CROVALIMAB-AKKZ
     Dosage: UNK
     Route: 058
     Dates: start: 20250422, end: 20250422
  7. PIASKY [Suspect]
     Active Substance: CROVALIMAB-AKKZ
     Dosage: UNK
     Route: 058
     Dates: start: 20250513, end: 20250513
  8. PIASKY [Suspect]
     Active Substance: CROVALIMAB-AKKZ
     Route: 058
  9. VOYDEYA [Suspect]
     Active Substance: DANICOPAN
     Indication: Paroxysmal nocturnal haemoglobinuria
     Route: 048
     Dates: start: 20240723
  10. VOYDEYA [Suspect]
     Active Substance: DANICOPAN
     Route: 048
     Dates: start: 20250415, end: 20250916

REACTIONS (5)
  - Type III immune complex mediated reaction [Recovered/Resolved]
  - Anaemia [Recovering/Resolving]
  - Haemolysis [Recovering/Resolving]
  - Off label use [Unknown]
  - Acute kidney injury [Recovered/Resolved]

NARRATIVE: CASE EVENT DATE: 20250304
